FAERS Safety Report 9392671 (Version 1)
Quarter: 2013Q3

REPORT INFORMATION
  Report Type: Report from Study
  Country: NL (occurrence: NL)
  Receive Date: 20130710
  Receipt Date: 20130710
  Transmission Date: 20140515
  Serious: Yes (Death)
  Sender: FDA-Public Use
  Company Number: PHHY2013NL072880

PATIENT
  Sex: Female

DRUGS (4)
  1. ZOMETA [Suspect]
     Indication: BREAST CANCER METASTATIC
     Dosage: 4 MG/100 ML, PER 4 WEEKS
  2. ZOMETA [Suspect]
     Dosage: 4 MG/100 ML, PER 4 WEEKS
     Dates: start: 20130328
  3. ZOMETA [Suspect]
     Dosage: 4 MG/100 ML, PER 4 WEEKS
     Dates: start: 20130523
  4. ZOMETA [Suspect]
     Dosage: 4 MG/100 ML, PER 4 WEEKS
     Dates: start: 20130620

REACTIONS (1)
  - Death [Fatal]
